FAERS Safety Report 19371857 (Version 1)
Quarter: 2021Q2

REPORT INFORMATION
  Report Type: Report from Study
  Country: IT (occurrence: IT)
  Receive Date: 20210604
  Receipt Date: 20210604
  Transmission Date: 20210717
  Serious: Yes (Other)
  Sender: FDA-Public Use
  Company Number: IT-TEVA-2021-IT-1918035

PATIENT
  Age: 59 Year
  Sex: Female
  Weight: 70 kg

DRUGS (1)
  1. PACLITAXEL TEVA ITALIA [Suspect]
     Active Substance: PACLITAXEL
     Indication: OVARIAN CANCER
     Dosage: UNIT DOSE: 280MG
     Route: 042
     Dates: start: 20210511, end: 20210511

REACTIONS (4)
  - Back pain [Recovered/Resolved]
  - Flushing [Recovered/Resolved]
  - Paraesthesia oral [Recovered/Resolved]
  - Dyspnoea [Recovered/Resolved]

NARRATIVE: CASE EVENT DATE: 20210511
